FAERS Safety Report 4631478-6 (Version None)
Quarter: 2005Q2

REPORT INFORMATION
  Report Type: 
  Country: None (occurrence: None)
  Receive Date: 20050407
  Receipt Date: 20050328
  Transmission Date: 20051028
  Serious: Yes (Other)
  Sender: FDA-Public Use
  Company Number: 2005018827

PATIENT
  Age: 41 Year
  Sex: Female
  Weight: 78.9259 kg

DRUGS (3)
  1. DEPO-PROVERA [Suspect]
     Indication: CONTRACEPTION
     Dosage: SEE IMAGE
     Route: 030
     Dates: start: 20041008, end: 20041008
  2. DEPO-PROVERA [Suspect]
     Indication: CONTRACEPTION
     Dosage: SEE IMAGE
     Route: 030
     Dates: start: 20041222, end: 20041222
  3. DEPO-PROVERA [Suspect]
     Indication: CONTRACEPTION
     Dosage: SEE IMAGE
     Route: 030
     Dates: start: 20050315, end: 20050315

REACTIONS (15)
  - CELLULITIS STAPHYLOCOCCAL [None]
  - COMEDONE [None]
  - CULTURE POSITIVE [None]
  - DERMATITIS EXFOLIATIVE [None]
  - DISEASE PROGRESSION [None]
  - INJECTION SITE ABSCESS [None]
  - INJECTION SITE CELLULITIS [None]
  - INJECTION SITE HAEMORRHAGE [None]
  - PAIN [None]
  - SCAB [None]
  - SCAR [None]
  - SCIATICA [None]
  - SKIN HYPERTROPHY [None]
  - STAPHYLOCOCCAL ABSCESS [None]
  - STAPHYLOCOCCAL INFECTION [None]
